FAERS Safety Report 17307142 (Version 1)
Quarter: 2020Q1

REPORT INFORMATION
  Report Type: Spontaneous
  Country: US (occurrence: US)
  Receive Date: 20200123
  Receipt Date: 20200123
  Transmission Date: 20200409
  Serious: No
  Sender: FDA-Public Use
  Company Number: US-BAUSCH-BL-2020-000463

PATIENT
  Age: 63 Year
  Sex: Female

DRUGS (1)
  1. PIMECROLIMUS CREAM [Suspect]
     Active Substance: PIMECROLIMUS
     Indication: ECZEMA EYELIDS
     Route: 061
     Dates: start: 20200103, end: 20200106

REACTIONS (3)
  - Product substitution issue [Unknown]
  - Condition aggravated [Not Recovered/Not Resolved]
  - Eczema [Not Recovered/Not Resolved]

NARRATIVE: CASE EVENT DATE: 202001
